FAERS Safety Report 6648743-3 (Version None)
Quarter: 2010Q1

REPORT INFORMATION
  Report Type: 
  Country: None (occurrence: None)
  Receive Date: 20100324
  Receipt Date: 20100312
  Transmission Date: 20100710
  Serious: Yes (Death, Other)
  Sender: FDA-Public Use
  Company Number: ZA-PFIZER INC-2010032629

PATIENT
  Age: 70 Year
  Sex: Female

DRUGS (1)
  1. SUTENT [Suspect]
     Indication: RENAL CELL CARCINOMA
     Dosage: 50 MG, PER DAY FOR 4 WEEKS ON 2 WEEKS OFF
     Route: 048
     Dates: start: 20090501, end: 20091101

REACTIONS (3)
  - ASTHENIA [None]
  - DEATH [None]
  - RASH [None]
